FAERS Safety Report 7598316-3 (Version None)
Quarter: 2011Q3

REPORT INFORMATION
  Report Type: 
  Country: None (occurrence: None)
  Receive Date: 20110708
  Receipt Date: 20110623
  Transmission Date: 20111222
  Serious: Yes (Life-Threatening)
  Sender: FDA-Public Use
  Company Number: FR-WATSON-2011-10131

PATIENT
  Age: 22 Year
  Sex: Female

DRUGS (1)
  1. TRAMADOL HCL [Suspect]
     Indication: INTENTIONAL OVERDOSE
     Dosage: 4500 MG, SINGLE (90 X 50MG CAPSULES)
     Route: 048

REACTIONS (5)
  - CARDIAC FAILURE CONGESTIVE [None]
  - SHOCK [None]
  - CARDIAC ARREST [None]
  - INTENTIONAL OVERDOSE [None]
  - PREDISPOSITION TO DISEASE [None]
